FAERS Safety Report 6820710-6 (Version None)
Quarter: 2010Q3

REPORT INFORMATION
  Report Type: 
  Country: None (occurrence: None)
  Receive Date: 20100707
  Receipt Date: 20100624
  Transmission Date: 20110219
  Serious: Yes (Hospitalization, Other)
  Sender: FDA-Public Use
  Company Number: SE-ELI_LILLY_AND_COMPANY-SE201006007217

PATIENT
  Age: 66 Year
  Sex: Female

DRUGS (18)
  1. ZYPREXA [Suspect]
     Dosage: 10 MG, DAILY (1/D)
     Route: 048
     Dates: start: 20080706
  2. TEGRETOL [Concomitant]
     Indication: EPILEPSY
     Dosage: 200 MG, 3/D
     Route: 048
     Dates: start: 20080706
  3. CITALOPRAM SANDOZ [Concomitant]
     Indication: DEPRESSION
     Dosage: 20 MG, DAILY (1/D)
     Route: 048
     Dates: start: 20100305
  4. CITALOPRAM SANDOZ [Concomitant]
     Dosage: 10 MG, DAILY (1/D)
     Route: 048
  5. FELODIPINE [Concomitant]
  6. METOPROLOL SANDOZ [Concomitant]
  7. OMEPRAZOLE [Concomitant]
  8. NITROLINGUAL [Concomitant]
  9. ACETAMINOPHEN [Concomitant]
  10. SOBRIL [Concomitant]
  11. FURIX [Concomitant]
  12. SUSCARD [Concomitant]
  13. TRILAFON [Concomitant]
  14. IMDUR [Concomitant]
  15. TROMBYL [Concomitant]
  16. CALCICHEW D3 [Concomitant]
  17. PROPYLESS /SWE/ [Concomitant]
     Dosage: 200 MG, UNK
     Route: 061
  18. ZOPIKLON [Concomitant]

REACTIONS (7)
  - HAEMOGLOBIN DECREASED [None]
  - HYPONATRAEMIA [None]
  - MENTAL IMPAIRMENT [None]
  - OEDEMA PERIPHERAL [None]
  - THIRST [None]
  - URINARY TRACT INFECTION [None]
  - WEIGHT INCREASED [None]
